FAERS Safety Report 5869884-4 (Version None)
Quarter: 2008Q3

REPORT INFORMATION
  Report Type: 
  Country: None (occurrence: None)
  Receive Date: 20080904
  Receipt Date: 20080822
  Transmission Date: 20090109
  Serious: Yes (Other)
  Sender: FDA-Public Use
  Company Number: PHEH2008US07456

PATIENT
  Sex: Male

DRUGS (10)
  1. SANDOSTATIN [Suspect]
     Indication: CARCINOID SYNDROME
     Dosage: TWICE DAILY
  2. SANDOSTATIN LAR [Suspect]
     Indication: CARCINOID SYNDROME
     Dosage: 20 MG ONCE MONTHLY
     Route: 058
     Dates: start: 20080806, end: 20080806
  3. COREG [Concomitant]
  4. DIGOXIN [Concomitant]
  5. OXYCODONE HCL [Concomitant]
  6. GLIPIZIDE [Concomitant]
  7. LEVOTHYROXINE SODIUM [Concomitant]
  8. LISINOPRIL [Concomitant]
  9. LASIX [Concomitant]
  10. POTASSIUM CHLORIDE [Concomitant]

REACTIONS (7)
  - CARCINOID SYNDROME [None]
  - CONDITION AGGRAVATED [None]
  - EYE DISORDER [None]
  - FLUSHING [None]
  - FOOD INTOLERANCE [None]
  - SERUM SEROTONIN INCREASED [None]
  - SYNCOPE [None]
